FAERS Safety Report 14503814 (Version 1)
Quarter: 2018Q1

REPORT INFORMATION
  Report Type: Spontaneous
  Country: US (occurrence: US)
  Receive Date: 20180208
  Receipt Date: 20180208
  Transmission Date: 20180509
  Serious: No
  Sender: FDA-Public Use
  Company Number: US-JNJFOC-20180116420

PATIENT
  Sex: Male

DRUGS (7)
  1. AMOXICILLIN. [Concomitant]
     Active Substance: AMOXICILLIN
  2. IMBRUVICA [Suspect]
     Active Substance: IBRUTINIB
     Indication: PRODUCT USED FOR UNKNOWN INDICATION
     Route: 048
  3. LEVOTHYROXINE. [Concomitant]
     Active Substance: LEVOTHYROXINE
  4. FINASTERIDE. [Concomitant]
     Active Substance: FINASTERIDE
  5. DOXEPIN [Concomitant]
     Active Substance: DOXEPIN
  6. AZELASTINE. [Concomitant]
     Active Substance: AZELASTINE HYDROCHLORIDE
  7. FEXOFENADINE/PSEUDOEPH. HCL [Concomitant]

REACTIONS (3)
  - Drug dose omission [Unknown]
  - Product use issue [Unknown]
  - Off label use [Unknown]
